FAERS Safety Report 11282147 (Version 4)
Quarter: 2017Q2

REPORT INFORMATION
  Report Type: Report from Study
  Country: CA (occurrence: CA)
  Receive Date: 20150720
  Receipt Date: 20170510
  Transmission Date: 20170829
  Serious: Yes (Other)
  Sender: FDA-Public Use
  Company Number: CA-ROCHE-1609468

PATIENT
  Age: 31 Year
  Sex: Female

DRUGS (4)
  1. METHYLPREDNISOLONE. [Concomitant]
     Active Substance: METHYLPREDNISOLONE
     Indication: PREMEDICATION
     Route: 042
     Dates: start: 20150210
  2. RITUXAN [Suspect]
     Active Substance: RITUXIMAB
     Indication: POLYMYOSITIS
     Dosage: FREQUENCY:  DAY 1 AND DAY 15, ON 28/NOV/2016: MOST RECENT DOSE OF RITUXIMAB.
     Route: 042
     Dates: start: 20150210
  3. DIPHENHYDRAMINE HCL [Concomitant]
     Active Substance: DIPHENHYDRAMINE HYDROCHLORIDE
     Indication: PREMEDICATION
     Route: 048
     Dates: start: 20150210
  4. ACETAMINOPHEN. [Concomitant]
     Active Substance: ACETAMINOPHEN
     Indication: PREMEDICATION
     Route: 048
     Dates: start: 20150210

REACTIONS (6)
  - Gastric ulcer [Recovered/Resolved]
  - Muscular weakness [Recovering/Resolving]
  - Blood creatine phosphokinase increased [Unknown]
  - Pain [Unknown]
  - Arthralgia [Not Recovered/Not Resolved]
  - Viral upper respiratory tract infection [Not Recovered/Not Resolved]

NARRATIVE: CASE EVENT DATE: 201506
